FAERS Safety Report 4707043-9 (Version None)
Quarter: 2005Q3

REPORT INFORMATION
  Report Type: 
  Country: None (occurrence: None)
  Receive Date: 20050701
  Receipt Date: 20050610
  Transmission Date: 20060218
  Serious: Yes (Death)
  Sender: FDA-Public Use
  Company Number: EM2005-0303

PATIENT
  Age: 63 Year
  Sex: Male

DRUGS (1)
  1. MACROLIN [Suspect]
     Indication: HIV INFECTION

REACTIONS (1)
  - MULTIPLE MYELOMA [None]
